FAERS Safety Report 7532821-0 (Version None)
Quarter: 2011Q2

REPORT INFORMATION
  Report Type: 
  Country: None (occurrence: None)
  Receive Date: 20110608
  Receipt Date: 20110601
  Transmission Date: 20111010
  Serious: Yes (Other)
  Sender: FDA-Public Use
  Company Number: US-PFIZER INC-2011118285

PATIENT
  Sex: Female
  Weight: 82.99 kg

DRUGS (7)
  1. XANAX [Concomitant]
     Indication: ANXIETY
     Dosage: UNK
  2. SYNTHROID [Concomitant]
     Indication: HYPOTHYROIDISM
     Dosage: UNK
  3. NEURONTIN [Suspect]
     Indication: PAIN
     Dosage: 600 MG, 3X/DAY
     Dates: start: 20090101
  4. NEURONTIN [Suspect]
     Dosage: 300 MG, 3X/DAY
  5. LISINOPRIL [Concomitant]
     Dosage: UNK
  6. SIMVASTATIN [Concomitant]
     Indication: BLOOD CHOLESTEROL INCREASED
     Dosage: UNK
  7. HYDROCHLOROTHIAZIDE [Concomitant]
     Indication: HYPERTENSION
     Dosage: UNK

REACTIONS (7)
  - DIZZINESS [None]
  - URINE OUTPUT INCREASED [None]
  - WEIGHT INCREASED [None]
  - FLUID RETENTION [None]
  - TREMOR [None]
  - FALL [None]
  - OEDEMA PERIPHERAL [None]
